FAERS Safety Report 25958143 (Version 4)
Quarter: 2025Q4

REPORT INFORMATION
  Report Type: Spontaneous
  Country: US (occurrence: None)
  Receive Date: 20251024
  Receipt Date: 20251215
  Transmission Date: 20260118
  Serious: Yes (Other)
  Sender: UCB
  Company Number: US-UCBSA-2025066142

PATIENT
  Weight: 157.95 kg

DRUGS (4)
  1. BIMZELX [Suspect]
     Active Substance: BIMEKIZUMAB-BKZX
     Indication: Psoriasis
     Dosage: 320 MILLIGRAM, EV 4 WEEKS
  2. BIMZELX [Suspect]
     Active Substance: BIMEKIZUMAB-BKZX
     Indication: Psoriatic arthropathy
     Dosage: 320 MILLIGRAM, EV 4 WEEKS
  3. BIMZELX [Suspect]
     Active Substance: BIMEKIZUMAB-BKZX
     Indication: Psoriatic arthropathy
     Dosage: 320 MILLIGRAMS ON WEEK 16
  4. BIMZELX [Suspect]
     Active Substance: BIMEKIZUMAB-BKZX
     Indication: Psoriasis
     Dosage: 320 MILLIGRAM, EV 4 WEEKS

REACTIONS (14)
  - Anaphylactic reaction [Unknown]
  - Fall [Unknown]
  - Blindness unilateral [Unknown]
  - Stress [Unknown]
  - Psoriasis [Unknown]
  - Upper limb fracture [Unknown]
  - Gait inability [Unknown]
  - Pain in extremity [Unknown]
  - Migraine [Unknown]
  - Oxygen therapy [Unknown]
  - Product dose omission issue [Unknown]
  - Product distribution issue [Unknown]
  - Unevaluable event [Unknown]
  - Drug hypersensitivity [Unknown]
